FAERS Safety Report 4516864-7 (Version None)
Quarter: 2004Q4

REPORT INFORMATION
  Report Type: 
  Country: None (occurrence: None)
  Receive Date: 20041202
  Receipt Date: 20041130
  Transmission Date: 20050328
  Serious: Yes (Other)
  Sender: FDA-Public Use
  Company Number: DE-GLAXOSMITHKLINE-D0045356A

PATIENT

DRUGS (1)
  1. EPIVIR [Suspect]
     Route: 065

REACTIONS (1)
  - SUPRAVENTRICULAR EXTRASYSTOLES [None]
